FAERS Safety Report 14858070 (Version 5)
Quarter: 2019Q2

REPORT INFORMATION
  Report Type: Report from Study
  Country: CA (occurrence: CA)
  Receive Date: 20180508
  Receipt Date: 20190520
  Transmission Date: 20190711
  Serious: Yes (Other)
  Sender: FDA-Public Use
  Company Number: CA-BRISTOL-MYERS SQUIBB COMPANY-BMS-2017-112559

PATIENT
  Sex: Female

DRUGS (1)
  1. ABATACEPT [Suspect]
     Active Substance: ABATACEPT
     Indication: RHEUMATOID ARTHRITIS
     Dosage: 750 MG, Q4WK
     Route: 042
     Dates: start: 20171206

REACTIONS (10)
  - Bronchitis [Unknown]
  - Malabsorption [Unknown]
  - Polydipsia [Unknown]
  - Respiratory tract infection [Unknown]
  - Pulmonary oedema [Unknown]
  - Sinusitis [Recovered/Resolved]
  - Polyp [Unknown]
  - Rheumatoid arthritis [Unknown]
  - Weight increased [Unknown]
  - Basal cell carcinoma [Unknown]
